FAERS Safety Report 8962062 (Version 3)
Quarter: 2013Q1

REPORT INFORMATION
  Report Type: Spontaneous
  Country: US (occurrence: US)
  Receive Date: 20121213
  Receipt Date: 20130211
  Transmission Date: 20140127
  Serious: Yes (Hospitalization, Other)
  Sender: FDA-Public Use
  Company Number: US-AMGEN-USASP2012078780

PATIENT
  Sex: Female
  Weight: 60.32 kg

DRUGS (1)
  1. ENBREL [Suspect]
     Indication: RHEUMATOID ARTHRITIS
     Dosage: 50 MG, QWK
     Dates: start: 20020125

REACTIONS (3)
  - Fall [Unknown]
  - Stress cardiomyopathy [Recovered/Resolved]
  - Blood pressure increased [Not Recovered/Not Resolved]
